FAERS Safety Report 12418054 (Version 2)
Quarter: 2016Q2

REPORT INFORMATION
  Report Type: Spontaneous
  Country: AU (occurrence: AU)
  Receive Date: 20160531
  Receipt Date: 20160602
  Transmission Date: 20160815
  Serious: Yes (Other)
  Sender: FDA-Public Use
  Company Number: AU-009507513-1605AUS012269

PATIENT
  Age: 51 Year
  Sex: Female
  Weight: 63 kg

DRUGS (9)
  1. CALCIUM ASCORBATE [Concomitant]
     Active Substance: CALCIUM ASCORBATE
  2. SIMVASTATIN. [Suspect]
     Active Substance: SIMVASTATIN
     Dosage: 20 MG, QD
     Route: 048
     Dates: start: 20160120, end: 20160123
  3. AVANZA [Concomitant]
     Active Substance: MIRTAZAPINE
     Dosage: 15 MG, NOCTE (EVERY NIGHT)
     Route: 048
  4. PANADEINE (ACETAMINOPHEN (+) CODEINE PHOSPHATE) [Concomitant]
  5. ASCORBIC ACID. [Concomitant]
     Active Substance: ASCORBIC ACID
  6. FOSAMAX [Concomitant]
     Active Substance: ALENDRONATE SODIUM
     Route: 048
  7. MOGADON [Concomitant]
     Active Substance: NITRAZEPAM
     Dosage: 1/4 NOCTE
  8. SPIRIVA [Concomitant]
     Active Substance: TIOTROPIUM BROMIDE MONOHYDRATE
  9. ZYRTEC [Concomitant]
     Active Substance: CETIRIZINE HYDROCHLORIDE

REACTIONS (4)
  - Urticaria [Unknown]
  - Concomitant disease aggravated [Unknown]
  - Heart rate irregular [Unknown]
  - Fatigue [Unknown]

NARRATIVE: CASE EVENT DATE: 201601
